FAERS Safety Report 5167201-9 (Version None)
Quarter: 2006Q4

REPORT INFORMATION
  Report Type: 
  Country: None (occurrence: None)
  Receive Date: 20061129
  Receipt Date: 20061114
  Transmission Date: 20070319
  Serious: Yes (Disabling)
  Sender: FDA-Public Use
  Company Number: 36987

PATIENT
  Age: 72 Year
  Sex: Male

DRUGS (4)
  1. TIMOLOL 0.50% [Suspect]
     Indication: KERATITIS HERPETIC
  2. PREDNISOLONE [Suspect]
     Indication: KERATITIS HERPETIC
  3. ACYCLOVIR [Concomitant]
  4. ACETAZOLAMIDE [Concomitant]

REACTIONS (3)
  - BLINDNESS [None]
  - CORNEAL DEPOSITS [None]
  - VISUAL ACUITY REDUCED [None]
